FAERS Safety Report 7456146-7 (Version None)
Quarter: 2011Q2

REPORT INFORMATION
  Report Type: 
  Country: None (occurrence: None)
  Receive Date: 20110503
  Receipt Date: 20090930
  Transmission Date: 20111010
  Serious: Yes (Other)
  Sender: FDA-Public Use
  Company Number: US-BAYER-200935072NA

PATIENT
  Age: 57 Year
  Sex: Female
  Weight: 104.31 kg

DRUGS (27)
  1. METFORMIN HYDROCHLORIDE [Concomitant]
     Dosage: 1000 MG, BID
  2. ALBUMIN (HUMAN) [Concomitant]
     Dosage: 250 MG, UNK
     Route: 042
     Dates: start: 20060831
  3. INSULIN [Concomitant]
     Dosage: UNK
     Dates: start: 20000101
  4. GLIMEPIRIDE [Suspect]
  5. LEVOPHED [Concomitant]
     Dosage: 12.38 ML, UNK
     Route: 042
     Dates: start: 20060831
  6. MILRINONE [Concomitant]
     Dosage: 5 MG, UNK
     Route: 042
     Dates: start: 20060831
  7. HYZAAR [Concomitant]
     Dosage: 100/25 MG DAILY
  8. NEXIUM [Concomitant]
     Dosage: 40 MG, QD
  9. COZAAR [Concomitant]
  10. FUROSEMIDE [Concomitant]
     Dosage: 40 MG, QD
     Dates: start: 20050101
  11. MANNITOL [Concomitant]
     Dosage: 12.5 G, UNK
     Route: 042
     Dates: start: 20060831
  12. BYETTA [Concomitant]
     Dosage: 5 MG, BID
     Dates: start: 20040101
  13. CEFUROXIME [Concomitant]
     Dosage: 1.5 G, UNK
     Route: 042
     Dates: start: 20060831
  14. DIPHENHYDRAMINE [Concomitant]
     Dosage: 100 MG, UNK
     Route: 042
     Dates: start: 20060831
  15. VANCOMYCIN [Concomitant]
     Dosage: UNK
     Dates: start: 20060831
  16. FUROSEMIDE [Concomitant]
     Dosage: 40 MG, UNK
     Route: 042
     Dates: start: 20060831
  17. LISINOPRIL [Concomitant]
     Dosage: 40 MG, QD
  18. IMIPRAMINE [Concomitant]
     Dosage: 4 MG, BID
  19. NITROGLYCERIN [Concomitant]
     Dosage: UNK
     Route: 042
     Dates: start: 20060831
  20. ZOCOR [Concomitant]
     Dosage: 80 MG, HS
  21. HEPARIN [Concomitant]
     Dosage: UNK
     Route: 042
     Dates: start: 20060831
  22. TRASYLOL [Suspect]
     Indication: CORONARY ARTERY BYPASS
     Dosage: 408 ML, UNK
     Route: 042
     Dates: start: 20060831
  23. ZETIA [Concomitant]
     Dosage: 10 MG, QD
     Dates: start: 20040101
  24. PLAVIX [Concomitant]
  25. COREG [Concomitant]
     Dosage: 6.25 MG, BID
  26. PEPCID [Concomitant]
     Dosage: 20 MG, UNK
     Route: 042
     Dates: start: 20060831
  27. PROTAMINE SULFATE [Concomitant]
     Dosage: 250 MG, UNK
     Route: 042
     Dates: start: 20060831

REACTIONS (11)
  - EMOTIONAL DISTRESS [None]
  - ANXIETY [None]
  - PAIN [None]
  - INJURY [None]
  - RENAL INJURY [None]
  - CEREBROVASCULAR ACCIDENT [None]
  - RENAL IMPAIRMENT [None]
  - FEAR [None]
  - RENAL FAILURE [None]
  - STRESS [None]
  - UNEVALUABLE EVENT [None]
